FAERS Safety Report 15302022 (Version 1)
Quarter: 2018Q3

REPORT INFORMATION
  Report Type: Spontaneous
  Country: JP (occurrence: JP)
  Receive Date: 20180821
  Receipt Date: 20180821
  Transmission Date: 20181010
  Serious: Yes (Other)
  Sender: FDA-Public Use
  Company Number: JP-BAYER-2018-157275

PATIENT
  Age: 76 Year
  Sex: Male

DRUGS (2)
  1. CANDESARTAN. [Concomitant]
     Active Substance: CANDESARTAN
     Route: 048
  2. NEXAVAR [Suspect]
     Active Substance: SORAFENIB
     Indication: HEPATOCELLULAR CARCINOMA
     Dosage: 200 MG, BID
     Route: 048
     Dates: start: 20170201

REACTIONS (1)
  - Hepatocellular carcinoma [None]
